FAERS Safety Report 9441878 (Version 1)
Quarter: 2013Q3

REPORT INFORMATION
  Report Type: Spontaneous
  Country: US (occurrence: US)
  Receive Date: 20130806
  Receipt Date: 20130806
  Transmission Date: 20140515
  Serious: No
  Sender: FDA-Public Use
  Company Number: US-BAYER-2013-094154

PATIENT
  Sex: Male

DRUGS (2)
  1. BETASERON [Suspect]
     Indication: MULTIPLE SCLEROSIS
     Dosage: 0.03 MG, QOD
     Dates: start: 2010
  2. PROSCAR [Concomitant]
     Indication: PROSTATE CANCER
     Dosage: 5 MG, QD
     Dates: start: 201302

REACTIONS (1)
  - Injection site inflammation [None]
